FAERS Safety Report 5321999-5 (Version None)
Quarter: 2007Q2

REPORT INFORMATION
  Report Type: 
  Country: None (occurrence: None)
  Receive Date: 20070511
  Receipt Date: 20070507
  Transmission Date: 20071010
  Serious: Yes (Life-Threatening)
  Sender: FDA-Public Use
  Company Number: PHBS2007TR04211

PATIENT
  Age: 42 Year

DRUGS (4)
  1. MOCLOBEMIDE [Suspect]
     Dosage: 2400 MG, ONCE/SINGLE
     Route: 048
  2. MOCLOBEMIDE [Suspect]
     Route: 048
  3. MELLARIL [Suspect]
     Indication: PSYCHOTIC DISORDER
     Dosage: 1000 MG, ONCE/SINGLE
     Route: 048
  4. MELLARIL [Suspect]
     Route: 048

REACTIONS (21)
  - ALANINE AMINOTRANSFERASE INCREASED [None]
  - ASPARTATE AMINOTRANSFERASE INCREASED [None]
  - BLOOD CREATINE PHOSPHOKINASE INCREASED [None]
  - BLOOD LACTATE DEHYDROGENASE INCREASED [None]
  - BLOOD PRESSURE INCREASED [None]
  - CARDIAC ARREST [None]
  - HEART RATE INCREASED [None]
  - HEPATIC ENZYME INCREASED [None]
  - HYPOCALCAEMIA [None]
  - INTUBATION [None]
  - LEUKOCYTOSIS [None]
  - LOSS OF CONSCIOUSNESS [None]
  - MUSCLE RIGIDITY [None]
  - NEUROLEPTIC MALIGNANT SYNDROME [None]
  - OVERDOSE [None]
  - OXYGEN SATURATION DECREASED [None]
  - PYREXIA [None]
  - RESPIRATORY ARREST [None]
  - RESPIRATORY DISTRESS [None]
  - RESUSCITATION [None]
  - VENTRICULAR FIBRILLATION [None]
